FAERS Safety Report 23532852 (Version 1)
Quarter: 2024Q1

REPORT INFORMATION
  Report Type: Spontaneous
  Country: US (occurrence: None)
  Receive Date: 20240216
  Receipt Date: 20240216
  Transmission Date: 20240410
  Serious: Yes (Hospitalization)
  Sender: FDA-Public Use
  Company Number: None

PATIENT
  Age: 56 Year
  Sex: Female
  Weight: 57.5 kg

DRUGS (5)
  1. CYCLOPHOSPHAMIDE [Suspect]
     Active Substance: CYCLOPHOSPHAMIDE
     Dates: end: 20240128
  2. CYTARABINE [Suspect]
     Active Substance: CYTARABINE
     Dates: end: 20240124
  3. SPRYCEL [Suspect]
     Active Substance: DASATINIB
     Dates: end: 20240119
  4. METHOTREXATE [Suspect]
     Dates: end: 20240201
  5. VINCRISTINE SULFATE [Suspect]
     Dates: end: 20240205

REACTIONS (7)
  - Pyrexia [None]
  - Bacterial test positive [None]
  - White blood cells urine positive [None]
  - Pleural effusion [None]
  - Pneumonia [None]
  - Urinary tract infection [None]
  - Laboratory test interference [None]

NARRATIVE: CASE EVENT DATE: 20240211
